FAERS Safety Report 6687705-7 (Version None)
Quarter: 2010Q2

REPORT INFORMATION
  Report Type: 
  Country: None (occurrence: None)
  Receive Date: 20100416
  Receipt Date: 20100416
  Transmission Date: 20101027
  Serious: Yes (Hospitalization)
  Sender: FDA-Public Use
  Company Number: None

PATIENT
  Age: 57 Year
  Sex: Male
  Weight: 98 kg

DRUGS (1)
  1. METHADONE HCL [Suspect]
     Indication: BACK PAIN
     Dosage: 10 MG BID PO
     Route: 048
     Dates: start: 20090722, end: 20091204

REACTIONS (6)
  - BRADYCARDIA [None]
  - CONVULSION [None]
  - HYPOTENSION [None]
  - OVERDOSE [None]
  - SEDATION [None]
  - VOMITING [None]
